FAERS Safety Report 18469074 (Version 1)
Quarter: 2020Q4

REPORT INFORMATION
  Report Type: Spontaneous
  Country: US (occurrence: US)
  Receive Date: 20201105
  Receipt Date: 20201105
  Transmission Date: 20210114
  Serious: No
  Sender: FDA-Public Use
  Company Number: US-JNJFOC-20201048813

PATIENT
  Age: 62 Year
  Sex: Female

DRUGS (1)
  1. TREMFYA [Suspect]
     Active Substance: GUSELKUMAB
     Indication: PSORIATIC ARTHROPATHY
     Route: 030
     Dates: start: 20200917

REACTIONS (7)
  - Joint swelling [Unknown]
  - Rash [Unknown]
  - Swollen tongue [Unknown]
  - Off label use [Unknown]
  - Incorrect route of product administration [Unknown]
  - Pruritus [Unknown]
  - Skin tightness [Unknown]

NARRATIVE: CASE EVENT DATE: 20200917
